FAERS Safety Report 16483006 (Version 1)
Quarter: 2019Q2

REPORT INFORMATION
  Report Type: Spontaneous
  Country: US (occurrence: US)
  Receive Date: 20190627
  Receipt Date: 20190627
  Transmission Date: 20190711
  Serious: No
  Sender: FDA-Public Use
  Company Number: US-BAYER-2019-121923

PATIENT
  Sex: Female

DRUGS (2)
  1. EQUATE GENTLE LAXATIVE [Concomitant]
     Active Substance: BISACODYL
  2. MIRALAX [Suspect]
     Active Substance: POLYETHYLENE GLYCOL 3350
     Indication: GASTROINTESTINAL DISORDER
     Dosage: TAKE 2 AND 3 TIMES
     Route: 048

REACTIONS (2)
  - Drug ineffective [None]
  - Product use issue [Not Recovered/Not Resolved]
